FAERS Safety Report 21455514 (Version 1)
Quarter: 2022Q4

REPORT INFORMATION
  Report Type: Spontaneous
  Country: US (occurrence: US)
  Receive Date: 20221014
  Receipt Date: 20221014
  Transmission Date: 20230112
  Serious: No
  Sender: FDA-Public Use
  Company Number: US-GLENMARK PHARMACEUTICALS-2022GMK074395

PATIENT

DRUGS (2)
  1. ARFORMOTEROL TARTRATE INHALATION [Suspect]
     Active Substance: ARFORMOTEROL TARTRATE
     Indication: Product used for unknown indication
     Dosage: 1 VIAL TWICE DAILY (BID)
     Route: 065
     Dates: start: 20210706, end: 20211001
  2. BUDESONIDE [Concomitant]
     Active Substance: BUDESONIDE
     Indication: Product used for unknown indication
     Dosage: UNK, BUDESONIDE INHALATION SUSPENSION
     Route: 065

REACTIONS (2)
  - Recalled product administered [Unknown]
  - Drug ineffective [Unknown]
